FAERS Safety Report 18079134 (Version 1)
Quarter: 2020Q3

REPORT INFORMATION
  Report Type: Spontaneous
  Country: US (occurrence: US)
  Receive Date: 20200728
  Receipt Date: 20200728
  Transmission Date: 20201103
  Serious: Yes (Death, Hospitalization)
  Sender: FDA-Public Use
  Company Number: None

PATIENT
  Age: 14 Month
  Sex: Female
  Weight: 11.3 kg

DRUGS (2)
  1. CYCLOPHOSPHAMIDE. [Suspect]
     Active Substance: CYCLOPHOSPHAMIDE
     Dates: end: 20120218
  2. TOPOTECAN [Suspect]
     Active Substance: TOPOTECAN HYDROCHLORIDE
     Dates: end: 20120218

REACTIONS (9)
  - Haemodialysis [None]
  - Cardiac arrest [None]
  - Metastases to central nervous system [None]
  - Tumour embolism [None]
  - Respiratory failure [None]
  - Cardiac failure [None]
  - Brain hypoxia [None]
  - Cerebellar microhaemorrhage [None]
  - Brain oedema [None]

NARRATIVE: CASE EVENT DATE: 20120216
